FAERS Safety Report 8948214 (Version 1)
Quarter: 2012Q4

REPORT INFORMATION
  Report Type: Spontaneous
  Country: US (occurrence: None)
  Receive Date: 20121203
  Receipt Date: 20121203
  Transmission Date: 20130627
  Serious: Yes (Other)
  Sender: FDA-Public Use
  Company Number: None

PATIENT
  Age: 29 Year
  Sex: Female
  Weight: 87.09 kg

DRUGS (1)
  1. GEODON 40MG [Suspect]
     Dosage: One BID PO
     Route: 048

REACTIONS (2)
  - No therapeutic response [None]
  - Therapeutic response unexpected with drug substitution [None]
